FAERS Safety Report 20415101 (Version 3)
Quarter: 2022Q1

REPORT INFORMATION
  Report Type: Spontaneous
  Country: US (occurrence: US)
  Receive Date: 20220202
  Receipt Date: 20220325
  Transmission Date: 20220423
  Serious: No
  Sender: FDA-Public Use
  Company Number: US-Ipsen Biopharmaceuticals, Inc.-2022-02381

PATIENT
  Age: 66 Year
  Sex: Female

DRUGS (12)
  1. DYSPORT [Suspect]
     Active Substance: ABOBOTULINUMTOXINA
     Indication: Skin wrinkling
     Dosage: 150 IU
     Route: 030
     Dates: start: 20220107, end: 20220107
  2. DYSPORT [Suspect]
     Active Substance: ABOBOTULINUMTOXINA
     Indication: Skin wrinkling
  3. DYSPORT [Suspect]
     Active Substance: ABOBOTULINUMTOXINA
     Indication: Skin wrinkling
  4. DYSPORT [Suspect]
     Active Substance: ABOBOTULINUMTOXINA
     Indication: Off label use
  5. JUVEDERM [Suspect]
     Active Substance: HYALURONIC ACID
     Indication: Skin wrinkling
     Dates: start: 20220107, end: 20220107
  6. JUVEDERM [Suspect]
     Active Substance: HYALURONIC ACID
     Indication: Skin wrinkling
  7. JUVEDERM [Suspect]
     Active Substance: HYALURONIC ACID
     Indication: Skin wrinkling
  8. HYALURONIC ACID [Suspect]
     Active Substance: HYALURONIC ACID
     Indication: Skin wrinkling
     Dates: start: 20220107, end: 20220107
  9. HYALURONIC ACID [Suspect]
     Active Substance: HYALURONIC ACID
     Indication: Skin wrinkling
  10. HYALURONIC ACID [Suspect]
     Active Substance: HYALURONIC ACID
     Indication: Skin wrinkling
  11. LEVOTHYROXINE [Concomitant]
     Active Substance: LEVOTHYROXINE
     Indication: Hypothyroidism
  12. EXFORGE [Concomitant]
     Active Substance: AMLODIPINE BESYLATE\VALSARTAN
     Indication: Blood cholesterol increased

REACTIONS (14)
  - Injection site mass [Recovering/Resolving]
  - Eyelid ptosis [Recovering/Resolving]
  - Eye swelling [Recovering/Resolving]
  - Swelling of eyelid [Not Recovered/Not Resolved]
  - Nervousness [Unknown]
  - Facial pain [Unknown]
  - Swelling face [Unknown]
  - Headache [Not Recovered/Not Resolved]
  - Frustration tolerance decreased [Unknown]
  - Emotional distress [Unknown]
  - Impaired work ability [Unknown]
  - Off label use [Unknown]
  - Off label use [Unknown]
  - Product preparation error [Unknown]

NARRATIVE: CASE EVENT DATE: 20220107
